FAERS Safety Report 5922786-7 (Version None)
Quarter: 2008Q4

REPORT INFORMATION
  Report Type: 
  Country: None (occurrence: None)
  Receive Date: 20081017
  Receipt Date: 20081008
  Transmission Date: 20090506
  Serious: Yes (Hospitalization)
  Sender: FDA-Public Use
  Company Number: FR-WYE-H06396308

PATIENT
  Age: 49 Year
  Sex: Female

DRUGS (9)
  1. CORDARONE [Suspect]
     Indication: TACHYCARDIA
     Dosage: UNKNOWN
     Route: 048
     Dates: start: 20080905, end: 20080907
  2. CORDARONE [Suspect]
     Indication: CARDIAC DISORDER
  3. MIDAZOLAM HCL [Concomitant]
  4. CALCIPARINE [Concomitant]
  5. ACTRAPID HUMAN [Concomitant]
  6. ZYVOXID [Concomitant]
  7. ALBUMIN (HUMAN) [Concomitant]
  8. TIENAM [Suspect]
     Indication: ESCHERICHIA INFECTION
     Dosage: UNKNOWN
     Route: 042
     Dates: start: 20080827, end: 20080908
  9. MORPHINE HYDROCHLORIDE ^AGUETTANT^ [Concomitant]

REACTIONS (2)
  - CHOLESTASIS [None]
  - CONDITION AGGRAVATED [None]
